FAERS Safety Report 7705728-3 (Version None)
Quarter: 2011Q3

REPORT INFORMATION
  Report Type: 
  Country: None (occurrence: None)
  Receive Date: 20110824
  Receipt Date: 20110816
  Transmission Date: 20111222
  Serious: Yes (Hospitalization, Other)
  Sender: FDA-Public Use
  Company Number: US-BAYER-201024585NA

PATIENT
  Age: 25 Year
  Sex: Female
  Weight: 50.794 kg

DRUGS (8)
  1. PERCOCET [Concomitant]
     Dosage: 325 MG, UNK
     Route: 048
     Dates: start: 20090331
  2. DILAUDID [Concomitant]
     Dosage: 0.2 MG, UNK
     Dates: start: 20090331
  3. AUGMENTIN '125' [Concomitant]
     Dosage: 875 MG, UNK
     Dates: start: 20090404
  4. YAZ [Suspect]
     Indication: ACNE
     Dosage: UNK UNK, QD
     Dates: start: 20081101, end: 20091101
  5. CEFOXITIN [Concomitant]
     Dosage: 2 G, UNK
     Route: 048
     Dates: start: 20090331
  6. ULTRAM [Concomitant]
     Dosage: 50 MG, UNK
     Route: 048
     Dates: start: 20090331
  7. DARVOCET-N 50 [Concomitant]
     Indication: PAIN
     Dosage: UNK
     Route: 048
     Dates: start: 20090404
  8. DROSPIRENONE AND ETHINYL ESTRADIOL [Suspect]
     Dosage: UNK
     Dates: start: 20081101, end: 20091101

REACTIONS (4)
  - CHOLELITHIASIS [None]
  - ABDOMINAL PAIN UPPER [None]
  - CHOLECYSTITIS [None]
  - ABDOMINAL PAIN [None]
